FAERS Safety Report 6086193-1 (Version None)
Quarter: 2009Q1

REPORT INFORMATION
  Report Type: 
  Country: None (occurrence: None)
  Receive Date: 20090217
  Receipt Date: 20090217
  Transmission Date: 20090719
  Serious: Yes (Other)
  Sender: FDA-Public Use
  Company Number: None

PATIENT
  Age: 32 Year
  Sex: Male
  Weight: 113.3993 kg

DRUGS (2)
  1. MUCINEX DM [Suspect]
     Indication: NASAL CONGESTION
     Dosage: 1 PILL TOOK 1 TIME ONLY PO
     Route: 048
     Dates: start: 20090213, end: 20090213
  2. MUCINEX DM [Suspect]
     Indication: SINUS CONGESTION
     Dosage: 1 PILL TOOK 1 TIME ONLY PO
     Route: 048
     Dates: start: 20090213, end: 20090213

REACTIONS (5)
  - ERYTHEMA [None]
  - INFLAMMATION [None]
  - INSOMNIA [None]
  - OEDEMA PERIPHERAL [None]
  - PRURITUS [None]
